FAERS Safety Report 6610920-5 (Version None)
Quarter: 2010Q1

REPORT INFORMATION
  Report Type: 
  Country: None (occurrence: None)
  Receive Date: 20100222
  Receipt Date: 20100216
  Transmission Date: 20100710
  Serious: No
  Sender: FDA-Public Use
  Company Number: 2010000888

PATIENT
  Age: 54 Year
  Sex: Female

DRUGS (2)
  1. FENTORA [Suspect]
     Indication: HEADACHE
     Dosage: (3 IN 1 D), BU
     Route: 002
     Dates: start: 20100209
  2. PERCOCET [Concomitant]

REACTIONS (2)
  - APHTHOUS STOMATITIS [None]
  - DRUG PRESCRIBING ERROR [None]
